FAERS Safety Report 4973416-2 (Version None)
Quarter: 2006Q2

REPORT INFORMATION
  Report Type: 
  Country: None (occurrence: None)
  Receive Date: 20060410
  Receipt Date: 20060328
  Transmission Date: 20061013
  Serious: Yes (Hospitalization)
  Sender: FDA-Public Use
  Company Number: US017184

PATIENT
  Sex: Male

DRUGS (3)
  1. PROVIGIL [Suspect]
     Indication: ATTENTION DEFICIT/HYPERACTIVITY DISORDER
     Dates: start: 20060321, end: 20060326
  2. CAMPRAL [Concomitant]
  3. GABITRIL [Concomitant]

REACTIONS (9)
  - ALCOHOL USE [None]
  - ECHOLALIA [None]
  - EXOPHTHALMOS [None]
  - LETHARGY [None]
  - NARCOLEPSY [None]
  - OXYGEN SATURATION DECREASED [None]
  - PSYCHOTIC DISORDER [None]
  - SELF INJURIOUS BEHAVIOUR [None]
  - TREMOR [None]
